FAERS Safety Report 6689853-4 (Version None)
Quarter: 2010Q2

REPORT INFORMATION
  Report Type: 
  Country: None (occurrence: None)
  Receive Date: 20100421
  Receipt Date: 20100414
  Transmission Date: 20101027
  Serious: Yes (Hospitalization, Other)
  Sender: FDA-Public Use
  Company Number: US-BRISTOL-MYERS SQUIBB COMPANY-15063878

PATIENT
  Age: 68 Year
  Sex: Female

DRUGS (6)
  1. COUMADIN [Suspect]
     Indication: ATRIAL FIBRILLATION
     Route: 048
  2. LOVENOX [Suspect]
     Dates: start: 20010701
  3. PACERONE [Concomitant]
  4. PRINIVIL [Concomitant]
  5. DARVON-N [Concomitant]
  6. INDAPAMIDE [Concomitant]

REACTIONS (14)
  - ASTHENIA [None]
  - DECREASED APPETITE [None]
  - DEHYDRATION [None]
  - DYSURIA [None]
  - FOOT DEFORMITY [None]
  - HAEMATOMA [None]
  - MUSCLE SPASMS [None]
  - NERVE INJURY [None]
  - OEDEMA PERIPHERAL [None]
  - PARAESTHESIA [None]
  - POST PROCEDURAL DISCHARGE [None]
  - RENAL IMPAIRMENT [None]
  - SKIN ULCER [None]
  - VOMITING [None]
